FAERS Safety Report 4788045-3 (Version None)
Quarter: 2005Q4

REPORT INFORMATION
  Report Type: 
  Country: None (occurrence: None)
  Receive Date: 20051003
  Receipt Date: 20050923
  Transmission Date: 20060501
  Serious: Yes (Hospitalization)
  Sender: FDA-Public Use
  Company Number: 200508349

PATIENT
  Age: 9 Year
  Sex: Male

DRUGS (3)
  1. ALESION (EPINASTINE) [Suspect]
     Indication: URTICARIA
     Dosage: 12 MG DAILY PO
     Route: 048
     Dates: start: 20050914, end: 20050915
  2. BANAN [Suspect]
     Indication: PURULENCE
     Dates: end: 20050915
  3. LUVOX [Suspect]
     Indication: AUTISM
     Dates: end: 20050915

REACTIONS (3)
  - ERYTHEMA [None]
  - FACE OEDEMA [None]
  - URTICARIA [None]
